FAERS Safety Report 9131207 (Version 1)
Quarter: 2013Q1

REPORT INFORMATION
  Report Type: Spontaneous
  Country: US (occurrence: US)
  Receive Date: 20130301
  Receipt Date: 20130301
  Transmission Date: 20140127
  Serious: Yes (Death, Hospitalization, Other)
  Sender: FDA-Public Use
  Company Number: PHHY2013US019646

PATIENT
  Age: 38 Year
  Sex: Male

DRUGS (6)
  1. NILOTINIB [Suspect]
     Indication: CHRONIC MYELOID LEUKAEMIA
  2. CLADRIBINE [Concomitant]
     Indication: CHRONIC MYELOID LEUKAEMIA
  3. STEROIDS NOS [Concomitant]
     Route: 061
  4. PREDNISONE [Concomitant]
     Dosage: 60 MG, DAILY
  5. GANCICLOVIR [Concomitant]
     Route: 042
  6. IMMUNOSUPPRESSANTS [Concomitant]

REACTIONS (12)
  - Death [Fatal]
  - Acute graft versus host disease [Unknown]
  - Blast cell crisis [Unknown]
  - BK virus infection [Unknown]
  - Cytomegalovirus viraemia [Unknown]
  - Skin lesion [Unknown]
  - Eye disorder [Unknown]
  - Respiratory depression [Unknown]
  - Oral mucosa erosion [Unknown]
  - Dermatitis exfoliative [Unknown]
  - Dysuria [Unknown]
  - Haematuria [Unknown]
